FAERS Safety Report 12832280 (Version 1)
Quarter: 2016Q4

REPORT INFORMATION
  Report Type: Spontaneous
  Country: US (occurrence: US)
  Receive Date: 20161010
  Receipt Date: 20161010
  Transmission Date: 20170207
  Serious: No
  Sender: FDA-Public Use
  Company Number: US-JAZZ-2016-US-012897

PATIENT
  Age: 37 Year
  Sex: Male

DRUGS (9)
  1. MOTRIN IB [Concomitant]
     Active Substance: IBUPROFEN
  2. ZINC [Concomitant]
     Active Substance: ZINC\ZINC CHLORIDE
  3. FISH OIL CONCENTRATE [Concomitant]
  4. XYREM [Suspect]
     Active Substance: SODIUM OXYBATE
     Indication: NARCOLEPSY
     Dosage: 2.25 G, BID
     Route: 048
     Dates: start: 201605, end: 201605
  5. XYREM [Suspect]
     Active Substance: SODIUM OXYBATE
     Dosage: 3.75 G, BID
     Route: 048
     Dates: start: 201605, end: 201606
  6. XYREM [Suspect]
     Active Substance: SODIUM OXYBATE
     Dosage: 4.5 G, BID
     Route: 048
     Dates: start: 201606
  7. VITAMIN C TR [Concomitant]
  8. TYLENOL [Concomitant]
     Active Substance: ACETAMINOPHEN
  9. PROVIGIL [Concomitant]
     Active Substance: MODAFINIL

REACTIONS (3)
  - Nasopharyngitis [Not Recovered/Not Resolved]
  - Unevaluable event [Not Recovered/Not Resolved]
  - Dust allergy [Unknown]

NARRATIVE: CASE EVENT DATE: 2016
